FAERS Safety Report 12914358 (Version 1)
Quarter: 2016Q4

REPORT INFORMATION
  Report Type: Spontaneous
  Country: US (occurrence: US)
  Receive Date: 20161106
  Receipt Date: 20161106
  Transmission Date: 20170207
  Serious: No
  Sender: FDA-Public Use
  Company Number: US-RELYPSA-RLY2016001564

PATIENT
  Age: 71 Year
  Sex: Male

DRUGS (11)
  1. ATORVASTATIN [Concomitant]
     Active Substance: ATORVASTATIN
     Dosage: 10 MG, UNKNOWN
  2. CHLORTHALIDONE. [Concomitant]
     Active Substance: CHLORTHALIDONE
     Dosage: 50 MG, UNKNOWN
  3. CLONIDINE. [Concomitant]
     Active Substance: CLONIDINE
     Dosage: 0.3 MG, UNKNOWN
  4. SODIUM BICARBONATE. [Concomitant]
     Active Substance: SODIUM BICARBONATE
     Dosage: 10 G, UNKNOWN
  5. VELTASSA [Suspect]
     Active Substance: PATIROMER
     Dosage: 16.8 G, QD
     Route: 048
     Dates: start: 201606
  6. HYDRALAZINE [Concomitant]
     Active Substance: HYDRALAZINE HYDROCHLORIDE
     Dosage: 100 MG, UNKNOWN
  7. VELTASSA [Suspect]
     Active Substance: PATIROMER
     Indication: HYPERKALAEMIA
     Dosage: 8.4 G, QD
     Route: 048
     Dates: start: 201606, end: 201606
  8. VITAMIN D2 [Concomitant]
     Active Substance: ERGOCALCIFEROL
     Dosage: 50000 U, UNKNOWN
  9. AMLODIPINE [Concomitant]
     Active Substance: AMLODIPINE BESYLATE
     Dosage: 10 MG, UNKNOWN
  10. HYDROCORTISONE. [Concomitant]
     Active Substance: HYDROCORTISONE
     Dosage: 10 MG, UNKNOWN
  11. INSULIN [Concomitant]
     Active Substance: INSULIN NOS

REACTIONS (1)
  - Blood potassium increased [Unknown]

NARRATIVE: CASE EVENT DATE: 201606
